FAERS Safety Report 7860077-8 (Version None)
Quarter: 2011Q4

REPORT INFORMATION
  Report Type: 
  Country: None (occurrence: None)
  Receive Date: 20111025
  Receipt Date: 20111017
  Transmission Date: 20120403
  Serious: Yes (Hospitalization, Other)
  Sender: FDA-Public Use
  Company Number: US-ACCORD-010819

PATIENT
  Age: 60 Year
  Sex: Male

DRUGS (3)
  1. PREDNISONE TAB [Concomitant]
  2. MYCOPHENOLATE MOFETIL [Concomitant]
  3. TACROLIMUS [Suspect]
     Indication: LIVER TRANSPLANT
     Dosage: 1.00-MG-2.00 TIMES PER-1.0 DAYS

REACTIONS (10)
  - TREMOR [None]
  - BLOOD COUNT ABNORMAL [None]
  - AGITATION [None]
  - MUSCLE RIGIDITY [None]
  - IMMUNOSUPPRESSANT DRUG LEVEL DECREASED [None]
  - APHASIA [None]
  - CATATONIA [None]
  - ELECTROENCEPHALOGRAM ABNORMAL [None]
  - ANXIETY [None]
  - CONFUSIONAL STATE [None]
